FAERS Safety Report 10631356 (Version 1)
Quarter: 2014Q4

REPORT INFORMATION
  Report Type: Spontaneous
  Country: US (occurrence: US)
  Receive Date: 20141205
  Receipt Date: 20141205
  Transmission Date: 20150529
  Serious: No
  Sender: FDA-Public Use
  Company Number: US-BRISTOL-MYERS SQUIBB COMPANY-21593181

PATIENT
  Age: 34 Year
  Sex: Male
  Weight: 122.45 kg

DRUGS (5)
  1. ABILIFY [Suspect]
     Active Substance: ARIPIPRAZOLE
     Dosage: DOSE INCREASED:5MG?JU12014-ONGOING
     Route: 048
     Dates: start: 201406, end: 201407
  2. INVEGA [Suspect]
     Active Substance: PALIPERIDONE
     Dates: start: 2014
  3. EFFEXOR XR [Concomitant]
     Active Substance: VENLAFAXINE HYDROCHLORIDE
  4. ABILIFY MAINTENA [Suspect]
     Active Substance: ARIPIPRAZOLE
     Dosage: JU12014-ONGOING
     Dates: start: 2014
  5. PROZAC [Suspect]
     Active Substance: FLUOXETINE HYDROCHLORIDE
     Dosage: DOSE REDUCED:40MG

REACTIONS (8)
  - Blood triglycerides increased [Unknown]
  - Weight increased [Unknown]
  - Hallucination, auditory [Not Recovered/Not Resolved]
  - Nausea [Unknown]
  - Apathy [Not Recovered/Not Resolved]
  - Feeling abnormal [Unknown]
  - Anhedonia [Not Recovered/Not Resolved]
  - Depression [Recovering/Resolving]
